FAERS Safety Report 4521602-8 (Version None)
Quarter: 2004Q4

REPORT INFORMATION
  Report Type: 
  Country: None (occurrence: None)
  Receive Date: 20041206
  Receipt Date: 20041119
  Transmission Date: 20050328
  Serious: Yes (Other)
  Sender: FDA-Public Use
  Company Number: 10066156-C613745-0

PATIENT
  Age: 35 Year
  Sex: Female
  Weight: 58.9676 kg

DRUGS (1)
  1. SODIUM CHLORIDE 0.9 % IRRIGATION [Suspect]
     Dates: start: 20041021

REACTIONS (3)
  - BLOOD CULTURE POSITIVE [None]
  - POSTOPERATIVE INFECTION [None]
  - SERRATIA INFECTION [None]
